FAERS Safety Report 24604654 (Version 2)
Quarter: 2025Q1

REPORT INFORMATION
  Report Type: Report from Study
  Country: CA (occurrence: CA)
  Receive Date: 20241111
  Receipt Date: 20250211
  Transmission Date: 20250409
  Serious: Yes (Other)
  Sender: TAKEDA
  Company Number: CA-TAKEDA-2024TUS112021

PATIENT
  Sex: Female

DRUGS (3)
  1. VEDOLIZUMAB [Suspect]
     Active Substance: VEDOLIZUMAB
     Indication: Colitis ulcerative
  2. VEDOLIZUMAB [Suspect]
     Active Substance: VEDOLIZUMAB
  3. AVSOLA [Concomitant]
     Active Substance: INFLIXIMAB-AXXQ
     Dosage: 1600 MILLIGRAM, TID
     Dates: start: 202012

REACTIONS (2)
  - Haematochezia [Unknown]
  - Frequent bowel movements [Unknown]
